FAERS Safety Report 23933508 (Version 1)
Quarter: 2024Q2

REPORT INFORMATION
  Report Type: Spontaneous
  Country: US (occurrence: None)
  Receive Date: 20240602
  Receipt Date: 20240602
  Transmission Date: 20240715
  Serious: Yes (Other)
  Sender: FDA-Public Use
  Company Number: None

PATIENT
  Age: 50 Year
  Sex: Male
  Weight: 83.25 kg

DRUGS (3)
  1. LISINOPRIL [Suspect]
     Active Substance: LISINOPRIL
     Indication: Hypertension
     Dosage: OTHER QUANTITY : 1 CAPSULE(S);?FREQUENCY : DAILY;?
     Route: 048
     Dates: start: 20240522, end: 20240524
  2. INSULIN NOS [Concomitant]
     Active Substance: INSULIN NOS
  3. Rosuvastatin (calcium) [Concomitant]

REACTIONS (2)
  - Chest discomfort [None]
  - Pancreatitis acute [None]

NARRATIVE: CASE EVENT DATE: 20240601
